FAERS Safety Report 7548894-5 (Version None)
Quarter: 2011Q2

REPORT INFORMATION
  Report Type: 
  Country: None (occurrence: None)
  Receive Date: 20110615
  Receipt Date: 20110111
  Transmission Date: 20111010
  Serious: Yes (Hospitalization, Other)
  Sender: FDA-Public Use
  Company Number: US-BAYER-201030389NA

PATIENT
  Age: 19 Year
  Sex: Female
  Weight: 59.091 kg

DRUGS (10)
  1. BENTYL [Concomitant]
  2. MEDROL [Concomitant]
  3. ACCUTANE [Concomitant]
     Indication: ACNE
  4. VITAMIN E [Concomitant]
     Route: 048
  5. PROPYLTHIOURACIL [Concomitant]
     Indication: THYROID DISORDER
     Route: 048
     Dates: start: 20080807
  6. XYZAL [Concomitant]
     Indication: HYPERSENSITIVITY
     Route: 048
     Dates: start: 20080807
  7. ACIPHEX [Concomitant]
  8. YAZ [Suspect]
     Indication: ORAL CONTRACEPTION
     Dates: start: 20070401
  9. PREVACID [Concomitant]
     Route: 048
  10. PRILOSEC [Concomitant]
     Route: 048

REACTIONS (6)
  - ABDOMINAL PAIN LOWER [None]
  - CHOLECYSTITIS CHRONIC [None]
  - EPIGASTRIC DISCOMFORT [None]
  - ABDOMINAL PAIN UPPER [None]
  - NAUSEA [None]
  - DEEP VEIN THROMBOSIS [None]
